FAERS Safety Report 18454700 (Version 4)
Quarter: 2021Q1

REPORT INFORMATION
  Report Type: Report from Study
  Country: CA (occurrence: CA)
  Receive Date: 20201102
  Receipt Date: 20210323
  Transmission Date: 20210419
  Serious: Yes (Other)
  Sender: FDA-Public Use
  Company Number: CA-JNJFOC-20201009839

PATIENT
  Age: 5 Decade
  Sex: Female

DRUGS (2)
  1. REMICADE [Suspect]
     Active Substance: INFLIXIMAB
     Indication: CROHN^S DISEASE
     Dosage: THE PATIENT RECEIVED RECENT INFUSION ON 26?AUG?2020
     Route: 042
  2. REMICADE [Suspect]
     Active Substance: INFLIXIMAB
     Route: 042

REACTIONS (16)
  - Abdominal discomfort [Unknown]
  - Diarrhoea [Unknown]
  - Pain [Unknown]
  - Herpes zoster [Unknown]
  - Constipation [Unknown]
  - Product dose omission issue [Unknown]
  - General physical health deterioration [Unknown]
  - Frequent bowel movements [Unknown]
  - Dehydration [Unknown]
  - Cystitis [Unknown]
  - Endodontic procedure [Unknown]
  - Abdominal pain [Unknown]
  - Kidney infection [Unknown]
  - Gallbladder operation [Recovering/Resolving]
  - Poor venous access [Unknown]
  - Defaecation urgency [Unknown]

NARRATIVE: CASE EVENT DATE: 2020
